FAERS Safety Report 8523527-X (Version None)
Quarter: 2012Q3

REPORT INFORMATION
  Report Type: 
  Country: None (occurrence: None)
  Receive Date: 20120720
  Receipt Date: 20120712
  Transmission Date: 20120928
  Serious: Yes (Other)
  Sender: FDA-Public Use
  Company Number: US-JNJFOC-20120707029

PATIENT
  Sex: Female
  Weight: 64.55 kg

DRUGS (8)
  1. SIMVASTATIN [Concomitant]
     Indication: BLOOD CHOLESTEROL
     Dates: start: 20100101
  2. STRATTERA [Concomitant]
     Indication: ATTENTION DEFICIT/HYPERACTIVITY DISORDER
  3. MYCOPHENOLATE MOFETIL [Concomitant]
     Indication: ARTHRALGIA
  4. ASPIRIN [Concomitant]
     Indication: BLOOD CHOLESTEROL
  5. MUSCLE RELAXANT [Suspect]
     Indication: MYALGIA
     Dosage: TOOK 3 TIMES
     Dates: start: 20120601, end: 20120101
  6. VENLAFAXINE [Concomitant]
     Indication: HOT FLUSH
  7. REMICADE [Suspect]
     Indication: PSORIATIC ARTHROPATHY
     Route: 042
     Dates: start: 20110101
  8. LOSARTAN POTASSIUM [Concomitant]
     Indication: BLOOD PRESSURE
     Dates: start: 20090101

REACTIONS (8)
  - CONTUSION [None]
  - INSOMNIA [None]
  - FEELING ABNORMAL [None]
  - ARTHRALGIA [None]
  - PAIN [None]
  - MUSCLE SPASMS [None]
  - HYPOKINESIA [None]
  - MYALGIA [None]
